FAERS Safety Report 20961110 (Version 1)
Quarter: 2022Q2

REPORT INFORMATION
  Report Type: Spontaneous
  Country: US (occurrence: US)
  Receive Date: 20220615
  Receipt Date: 20220615
  Transmission Date: 20220721
  Serious: Yes (Other)
  Sender: FDA-Public Use
  Company Number: US-SCIEGENP-2022SCLIT00447

PATIENT
  Age: 81 Year
  Sex: Female

DRUGS (1)
  1. QUETIAPINE [Suspect]
     Active Substance: QUETIAPINE
     Indication: Psychiatric disorder prophylaxis
     Dosage: 10 DAYS
     Route: 065

REACTIONS (1)
  - Staphylococcal parotitis [Recovered/Resolved]
